FAERS Safety Report 13015263 (Version 1)
Quarter: 2016Q4

REPORT INFORMATION
  Report Type: Spontaneous
  Country: DK (occurrence: DK)
  Receive Date: 20161211
  Receipt Date: 20161211
  Transmission Date: 20170207
  Serious: Yes (Life-Threatening)
  Sender: FDA-Public Use
  Company Number: DK-TEVA-716319ACC

PATIENT
  Age: 90 Year
  Sex: Female
  Weight: 64 kg

DRUGS (2)
  1. CLARITHROMYCIN ^ACTAVIS^ [Suspect]
     Active Substance: CLARITHROMYCIN
     Indication: ATYPICAL PNEUMONIA
     Dosage: 500 MILLIGRAM DAILY; STRENGTH: 250 MG
     Route: 048
     Dates: start: 20161118, end: 20161119
  2. MIRTAZAPIN ^ACTAVIS^ [Interacting]
     Active Substance: MIRTAZAPINE
     Indication: DEPRESSION
     Route: 048
     Dates: end: 20161119

REACTIONS (2)
  - Drug interaction [Unknown]
  - Electrocardiogram QT prolonged [Recovered/Resolved]

NARRATIVE: CASE EVENT DATE: 20161119
